FAERS Safety Report 19441963 (Version 1)
Quarter: 2021Q2

REPORT INFORMATION
  Report Type: Spontaneous
  Country: ES (occurrence: ES)
  Receive Date: 20210621
  Receipt Date: 20210621
  Transmission Date: 20210717
  Serious: Yes (Hospitalization)
  Sender: FDA-Public Use
  Company Number: ES-MACLEODS PHARMA UK LTD-MAC2021031553

PATIENT

DRUGS (1)
  1. OLMESARTAN [Suspect]
     Active Substance: OLMESARTAN
     Indication: HYPERTENSION
     Dosage: UNK, SINCE ONE YEAR BEFORE
     Route: 065

REACTIONS (7)
  - Dyspepsia [Recovered/Resolved]
  - Coeliac disease [Recovered/Resolved]
  - Pallor [Recovered/Resolved]
  - Hypotension [Recovered/Resolved]
  - Mucosal dryness [Recovered/Resolved]
  - Chronic gastritis [Recovered/Resolved]
  - Decreased appetite [Recovered/Resolved]
